FAERS Safety Report 4644487-8 (Version None)
Quarter: 2005Q2

REPORT INFORMATION
  Report Type: 
  Country: None (occurrence: None)
  Receive Date: 20050425
  Receipt Date: 20050425
  Transmission Date: 20051028
  Serious: Yes (Other)
  Sender: FDA-Public Use
  Company Number: None

PATIENT
  Age: 47 Year
  Sex: Female
  Weight: 99.7913 kg

DRUGS (2)
  1. FENTANYL [Suspect]
     Indication: CARPAL TUNNEL SYNDROME
     Dosage: ONE TOP  Q 72 HOURS
     Route: 061
     Dates: start: 20050228, end: 20050404
  2. FENTANYL [Suspect]
     Indication: PANCREATITIS
     Dosage: ONE TOP  Q 72 HOURS
     Route: 061
     Dates: start: 20050228, end: 20050404

REACTIONS (2)
  - DRUG INEFFECTIVE [None]
  - OEDEMA PERIPHERAL [None]
